FAERS Safety Report 7548105-0 (Version None)
Quarter: 2011Q2

REPORT INFORMATION
  Report Type: 
  Country: None (occurrence: None)
  Receive Date: 20110615
  Receipt Date: 20110131
  Transmission Date: 20111010
  Serious: Yes (Hospitalization, Other)
  Sender: FDA-Public Use
  Company Number: US-BAYER-201036346NA

PATIENT
  Age: 30 Year
  Sex: Female
  Weight: 72 kg

DRUGS (14)
  1. YAZ [Suspect]
     Dosage: UNK
     Dates: start: 20060601, end: 20060101
  2. WELLBUTRIN [Concomitant]
  3. LAMICTAL [Concomitant]
  4. ANTACIDS [Concomitant]
  5. NEXIUM [Concomitant]
  6. INDOMETHACIN [Concomitant]
     Indication: URINARY TRACT INFECTION
  7. ALLEGRA-D 12 HOUR [Concomitant]
  8. BACTRIM [Concomitant]
     Indication: URINARY TRACT INFECTION
  9. CELEXA [Concomitant]
  10. YASMIN [Suspect]
     Indication: PRODUCT USED FOR UNKNOWN INDICATION
     Route: 048
     Dates: start: 20050701, end: 20090501
  11. XANAX [Concomitant]
  12. KLONOPIN [Concomitant]
  13. ALBUTEROL INHALER [Concomitant]
  14. ADVIL LIQUI-GELS [Concomitant]

REACTIONS (3)
  - CHOLECYSTITIS CHRONIC [None]
  - PAIN [None]
  - GALLBLADDER DISORDER [None]
